FAERS Safety Report 20297240 (Version 1)
Quarter: 2022Q1

REPORT INFORMATION
  Report Type: Spontaneous
  Country: US (occurrence: None)
  Receive Date: 20220105
  Receipt Date: 20220105
  Transmission Date: 20220423
  Serious: No
  Sender: FDA-Public Use
  Company Number: US-ROCHE-2848763

PATIENT
  Age: 8 Year
  Sex: Male
  Weight: 48.8 kg

DRUGS (1)
  1. HEMLIBRA [Suspect]
     Active Substance: EMICIZUMAB-KXWH
     Indication: Haemophilia A with anti factor VIII
     Dosage: ONGOING: YES, LOADING DOSE FOR 4 WEEKS
     Route: 058
     Dates: start: 20210524

REACTIONS (1)
  - Injection site pain [Not Recovered/Not Resolved]
